FAERS Safety Report 5468574-X (Version None)
Quarter: 2007Q3

REPORT INFORMATION
  Report Type: 
  Country: None (occurrence: None)
  Receive Date: 20070926
  Receipt Date: 20070912
  Transmission Date: 20080115
  Serious: Yes (Hospitalization)
  Sender: FDA-Public Use
  Company Number: US-KINGPHARMUSA00001-K200701174

PATIENT

DRUGS (1)
  1. SONATA [Suspect]
     Dosage: 60 MG, SINGLE
     Route: 048

REACTIONS (17)
  - CONFUSIONAL STATE [None]
  - COORDINATION ABNORMAL [None]
  - DEPRESSED LEVEL OF CONSCIOUSNESS [None]
  - DISORIENTATION [None]
  - DIZZINESS [None]
  - DRUG TOXICITY [None]
  - DYSARTHRIA [None]
  - HALLUCINATION [None]
  - HYPOKALAEMIA [None]
  - HYPOTONIA [None]
  - INTENTIONAL OVERDOSE [None]
  - MYDRIASIS [None]
  - PUPILLARY LIGHT REFLEX TESTS ABNORMAL [None]
  - SOMNOLENCE [None]
  - SUICIDE ATTEMPT [None]
  - TACHYCARDIA [None]
  - VOMITING [None]
